FAERS Safety Report 5743550-8 (Version None)
Quarter: 2008Q2

REPORT INFORMATION
  Report Type: 
  Country: None (occurrence: None)
  Receive Date: 20080519
  Receipt Date: 20080519
  Transmission Date: 20081010
  Serious: Yes (Life-Threatening, Hospitalization, Disabling, Other)
  Sender: FDA-Public Use
  Company Number: None

PATIENT
  Sex: Male
  Weight: 56.6996 kg

DRUGS (4)
  1. RISPERDAL [Suspect]
     Indication: ANXIETY
     Dosage: 1 1/2 1/2 MG MORNING 1 M
     Dates: start: 20071101, end: 20080512
  2. RISPERDAL [Suspect]
     Indication: AUTISM
     Dosage: 1 1/2 1/2 MG MORNING 1 M
     Dates: start: 20071101, end: 20080512
  3. RISPERDAL [Suspect]
     Indication: ANXIETY
     Dosage: 1 1/2 1/2 MG MORNING 1 M
     Dates: start: 20080512, end: 20080514
  4. RISPERDAL [Suspect]
     Indication: AUTISM
     Dosage: 1 1/2 1/2 MG MORNING 1 M
     Dates: start: 20080512, end: 20080514

REACTIONS (13)
  - ABDOMINAL PAIN UPPER [None]
  - COGNITIVE DISORDER [None]
  - CONFUSIONAL STATE [None]
  - DELUSION [None]
  - DEPRESSION [None]
  - DYSPNOEA [None]
  - HEADACHE [None]
  - MUSCULOSKELETAL STIFFNESS [None]
  - NECK PAIN [None]
  - PAIN IN EXTREMITY [None]
  - PHARMACEUTICAL PRODUCT COMPLAINT [None]
  - RESTLESSNESS [None]
  - STRABISMUS [None]
